FAERS Safety Report 13585945 (Version 3)
Quarter: 2018Q3

REPORT INFORMATION
  Report Type: Spontaneous
  Country: US (occurrence: US)
  Receive Date: 20170526
  Receipt Date: 20180828
  Transmission Date: 20181010
  Serious: No
  Sender: FDA-Public Use
  Company Number: US-SA-2017SA066386

PATIENT
  Sex: Female

DRUGS (1)
  1. CERDELGA [Suspect]
     Active Substance: ELIGLUSTAT
     Dosage: UNK UNK,UNK
     Route: 048
     Dates: start: 201701

REACTIONS (5)
  - Fatigue [Unknown]
  - Insomnia [Unknown]
  - Chitotriosidase increased [Not Recovered/Not Resolved]
  - Palpitations [Recovered/Resolved]
  - Tachycardia [Unknown]

NARRATIVE: CASE EVENT DATE: 201807
